FAERS Safety Report 19753930 (Version 1)
Quarter: 2021Q3

REPORT INFORMATION
  Report Type: Report from Study
  Country: CA (occurrence: CA)
  Receive Date: 20210826
  Receipt Date: 20210826
  Transmission Date: 20211014
  Serious: Yes (Hospitalization)
  Sender: FDA-Public Use
  Company Number: CA-JNJFOC-20210827282

PATIENT
  Age: 61 Year
  Sex: Female
  Weight: 52.5 kg

DRUGS (1)
  1. SIMPONI [Suspect]
     Active Substance: GOLIMUMAB
     Indication: RHEUMATOID ARTHRITIS
     Route: 058
     Dates: start: 20200903

REACTIONS (2)
  - Abscess intestinal [Not Recovered/Not Resolved]
  - Intestinal obstruction [Not Recovered/Not Resolved]
